FAERS Safety Report 19887284 (Version 2)
Quarter: 2021Q4

REPORT INFORMATION
  Report Type: Spontaneous
  Country: US (occurrence: US)
  Receive Date: 20210927
  Receipt Date: 20211007
  Transmission Date: 20220303
  Serious: Yes (Life-Threatening, Hospitalization, Other)
  Sender: FDA-Public Use
  Company Number: US-BAXTER-2021BAX029937

PATIENT
  Age: 77 Year
  Sex: Male

DRUGS (17)
  1. DOXIL [Suspect]
     Active Substance: DOXORUBICIN HYDROCHLORIDE
     Indication: Adult T-cell lymphoma/leukaemia
     Route: 065
  2. CYCLOPHOSPHAMIDE [Suspect]
     Active Substance: CYCLOPHOSPHAMIDE
     Indication: Adult T-cell lymphoma/leukaemia
     Route: 065
  3. ONCOVIN [Suspect]
     Active Substance: VINCRISTINE SULFATE
     Indication: Adult T-cell lymphoma/leukaemia
     Dosage: DOSE REDUCED; CYCLICAL
     Route: 065
  4. PREDNISONE [Suspect]
     Active Substance: PREDNISONE
     Indication: Adult T-cell lymphoma/leukaemia
     Dosage: 21 DAY CYCLE
     Route: 065
  5. PREDNISONE [Suspect]
     Active Substance: PREDNISONE
     Dosage: CYCLICAL
     Route: 065
  6. ZIDOVUDINE [Concomitant]
     Active Substance: ZIDOVUDINE
     Indication: Human T-cell lymphotropic virus type I infection
     Route: 065
  7. ZIDOVUDINE [Concomitant]
     Active Substance: ZIDOVUDINE
     Dosage: BIS IN DIE (BID) WAS INITIATED (UPON RETURN OF HTLV-1 RESULTS) TO REDUCE HTLV-1 BURDEN
     Route: 065
  8. PRAVASTATIN [Concomitant]
     Active Substance: PRAVASTATIN
     Indication: Hypercholesterolaemia
     Dosage: DAILY
     Route: 065
  9. URSODIOL [Concomitant]
     Active Substance: URSODIOL
     Indication: Hyperbilirubinaemia
     Dosage: DAILY
     Route: 048
  10. RIFAXIMIN [Concomitant]
     Active Substance: RIFAXIMIN
     Indication: Hepatic encephalopathy
     Route: 048
  11. RIFAXIMIN [Concomitant]
     Active Substance: RIFAXIMIN
     Indication: Asterixis
     Dosage: BID
     Route: 048
  12. FINASTERIDE [Concomitant]
     Active Substance: FINASTERIDE
     Indication: Benign prostatic hyperplasia
     Dosage: DAILY
     Route: 065
  13. LEVOTHYROXINE [Concomitant]
     Active Substance: LEVOTHYROXINE
     Indication: Hypothyroidism
     Dosage: 75 MCG, DAILY
     Route: 065
  14. DOXAZOSIN [Concomitant]
     Active Substance: DOXAZOSIN MESYLATE
     Indication: Benign prostatic hyperplasia
     Dosage: DAILY
     Route: 065
  15. LACTULOSE [Concomitant]
     Active Substance: LACTULOSE
     Indication: Asterixis
     Route: 048
  16. LACTULOSE [Concomitant]
     Active Substance: LACTULOSE
     Indication: Hepatic encephalopathy
     Dosage: TER IN DIE
     Route: 048
  17. cholestyramine, aspartame [Concomitant]
     Indication: Hyperbilirubinaemia
     Dosage: DAILY
     Route: 048

REACTIONS (3)
  - Pancytopenia [Recovering/Resolving]
  - Myelosuppression [Recovering/Resolving]
  - Anaemia [Recovering/Resolving]
